FAERS Safety Report 4627104-2 (Version None)
Quarter: 2005Q1

REPORT INFORMATION
  Report Type: 
  Country: None (occurrence: None)
  Receive Date: 20050331
  Receipt Date: 20050321
  Transmission Date: 20050727
  Serious: Yes (Other)
  Sender: FDA-Public Use
  Company Number: 2005016291

PATIENT
  Age: 44 Year
  Sex: Female

DRUGS (8)
  1. NEURONTIN [Suspect]
     Indication: FOOT FRACTURE
  2. DIAZEPAM [Suspect]
     Indication: PAIN
  3. IBUPROFEN [Suspect]
     Indication: ARTHRITIS
  4. VICODIN [Suspect]
     Indication: PAIN
  5. CODEINE PHOSPHATE AND ACETAMINOPHEN [Suspect]
     Indication: PAIN
  6. ATORVASTATIN CALCIUM [Concomitant]
  7. BUPROPION HYDROCHLORIDE [Concomitant]
  8. FLUCONAZOLE [Concomitant]

REACTIONS (1)
  - MEMORY IMPAIRMENT [None]
